FAERS Safety Report 4688582-6 (Version None)
Quarter: 2005Q2

REPORT INFORMATION
  Report Type: 
  Country: None (occurrence: None)
  Receive Date: 20050613
  Receipt Date: 20050607
  Transmission Date: 20051028
  Serious: Yes (Life-Threatening, Hospitalization, Other)
  Sender: FDA-Public Use
  Company Number: US-RB-1735-2005

PATIENT
  Age: 49 Year
  Sex: Male

DRUGS (3)
  1. SUBOXONE [Suspect]
     Indication: DRUG DEPENDENCE
     Route: 060
     Dates: start: 20031117
  2. DIAZEPAM [Concomitant]
  3. DOXEPIN HCL [Concomitant]

REACTIONS (5)
  - OVERDOSE [None]
  - ROAD TRAFFIC ACCIDENT [None]
  - SELF-MEDICATION [None]
  - SUICIDAL IDEATION [None]
  - TREATMENT NONCOMPLIANCE [None]
